FAERS Safety Report 5340832-9 (Version None)
Quarter: 2007Q2

REPORT INFORMATION
  Report Type: 
  Country: None (occurrence: None)
  Receive Date: 20070405
  Receipt Date: 20061208
  Transmission Date: 20071010
  Serious: No
  Sender: FDA-Public Use
  Company Number: US200612001623

PATIENT
  Age: 79 Year
  Sex: Female

DRUGS (5)
  1. CYMBALTA [Suspect]
     Indication: SPINAL COLUMN STENOSIS
     Dosage: 60 MG
  2. CYMBALTA [Suspect]
  3. TENORMIN /NEZ/ (ATENOLOL) [Concomitant]
  4. CLONOPIN [Concomitant]
  5. PAXIL [Concomitant]

REACTIONS (3)
  - DRUG INTOLERANCE [None]
  - INSOMNIA [None]
  - LIMB DISCOMFORT [None]
